FAERS Safety Report 7321235-4 (Version None)
Quarter: 2011Q1

REPORT INFORMATION
  Report Type: 
  Country: None (occurrence: None)
  Receive Date: 20110228
  Receipt Date: 20110222
  Transmission Date: 20110831
  Serious: Yes (Hospitalization, Other)
  Sender: FDA-Public Use
  Company Number: JP-CEPHALON-2011000924

PATIENT
  Age: 75 Year
  Sex: Female

DRUGS (4)
  1. BENDAMUSTINE HCL [Suspect]
     Indication: B-CELL LYMPHOMA
     Route: 041
     Dates: start: 20110128, end: 20110129
  2. CORTICOSTEROIDS [Concomitant]
  3. GRANISETRON HYDROCHLORIDE [Concomitant]
  4. ACICLOVIR [Concomitant]

REACTIONS (3)
  - DECREASED APPETITE [None]
  - LYMPHOPENIA [None]
  - BLOOD LACTATE DEHYDROGENASE INCREASED [None]
